FAERS Safety Report 4873946-8 (Version None)
Quarter: 2006Q1

REPORT INFORMATION
  Report Type: 
  Country: None (occurrence: None)
  Receive Date: 20060103
  Receipt Date: 20060103
  Transmission Date: 20060701
  Serious: Yes (Death, Life-Threatening, Hospitalization)
  Sender: FDA-Public Use
  Company Number: None

PATIENT
  Age: 66 Year
  Sex: Male
  Weight: 90.7194 kg

DRUGS (2)
  1. AMIODARONE  400 MG, THEN 200 MG [Suspect]
     Indication: HEART RATE IRREGULAR
     Dates: start: 20021113, end: 20031205
  2. AMIODARONE  400 MG, THEN 200 MG [Suspect]
     Indication: HEART RATE IRREGULAR
     Dates: start: 20021113, end: 20031205

REACTIONS (7)
  - COUGH [None]
  - DYSPNOEA [None]
  - INSOMNIA [None]
  - ORAL INTAKE REDUCED [None]
  - PULMONARY FIBROSIS [None]
  - SPEECH DISORDER [None]
  - WHEELCHAIR USER [None]
